FAERS Safety Report 13882978 (Version 1)
Quarter: 2017Q3

REPORT INFORMATION
  Report Type: Report from Study
  Country: US (occurrence: US)
  Receive Date: 20170818
  Receipt Date: 20170818
  Transmission Date: 20171127
  Serious: Yes (Hospitalization)
  Sender: FDA-Public Use
  Company Number: US-TEVA-768723USA

PATIENT
  Age: 46 Year
  Sex: Female

DRUGS (3)
  1. CINQAIR [Suspect]
     Active Substance: RESLIZUMAB
     Route: 065
     Dates: start: 20170502
  2. PREDNISONE. [Suspect]
     Active Substance: PREDNISONE
     Dosage: 20 MILLIGRAM DAILY;
     Dates: start: 2012
  3. PREDNISONE. [Suspect]
     Active Substance: PREDNISONE
     Dosage: 60-80MG FOR YEARS
     Route: 065

REACTIONS (4)
  - Malaise [Unknown]
  - Osteoarthritis [Unknown]
  - Vomiting [Unknown]
  - Encapsulation reaction [Not Recovered/Not Resolved]

NARRATIVE: CASE EVENT DATE: 2017
